FAERS Safety Report 9159322 (Version 1)
Quarter: 2013Q1

REPORT INFORMATION
  Report Type: Spontaneous
  Country: JP (occurrence: None)
  Receive Date: 20130213
  Receipt Date: 20130213
  Transmission Date: 20140127
  Serious: Yes (Hospitalization)
  Sender: FDA-Public Use
  Company Number: JP-2013-0161

PATIENT
  Age: 77 Year
  Sex: Male

DRUGS (8)
  1. ACLIDINIUM BROMIDE [Suspect]
     Indication: CHRONIC OBSTRUCTIVE PULMONARY DISEASE
     Route: 055
     Dates: start: 20121119
  2. THEODUR (THEOPHYLLINE) [Concomitant]
  3. ADOAIR (FLUTICASONE PROPIONATE, SALMETEROL XINAFOATE) [Concomitant]
  4. SULTANOL (SALBUTAMOL SULFATE) [Concomitant]
  5. GASLON N (IRSOGLADINE MALEATE) [Concomitant]
  6. CRESTOR (ROSUVASTATIN CALCIUM) [Concomitant]
  7. CERNILTON (CERNILTON (CERNITIN POLLEN EXTRACT) [Concomitant]
  8. MYSER (DIFLUPREDNATE) [Concomitant]

REACTIONS (3)
  - Pneumonia [None]
  - Dehydration [None]
  - Brain neoplasm [None]
